FAERS Safety Report 5348468-0 (Version None)
Quarter: 2007Q2

REPORT INFORMATION
  Report Type: 
  Country: None (occurrence: None)
  Receive Date: 20070606
  Receipt Date: 20070528
  Transmission Date: 20071010
  Serious: Yes (Hospitalization)
  Sender: FDA-Public Use
  Company Number: MY-PFIZER INC-2007035851

PATIENT
  Sex: Male
  Weight: 65 kg

DRUGS (9)
  1. SU-011,248 [Suspect]
     Indication: METASTATIC RENAL CELL CARCINOMA
     Route: 048
  2. LEVOTHYROXINE SODIUM [Concomitant]
     Route: 048
  3. AMLODIPINE [Concomitant]
     Route: 048
  4. METOPROLOL SUCCINATE [Concomitant]
     Route: 048
  5. SIMVASTATIN [Concomitant]
     Route: 048
  6. ESOMEPRAZOLE MAGNESIUM [Concomitant]
     Route: 048
     Dates: start: 20070418, end: 20070427
  7. HYOSCINE HBR HYT [Concomitant]
     Route: 048
     Dates: start: 20070429
  8. METOCLOPRAMIDE [Concomitant]
     Route: 048
     Dates: start: 20070427
  9. OMEPRAZOLE [Concomitant]
     Route: 048
     Dates: start: 20070430

REACTIONS (1)
  - RENAL IMPAIRMENT [None]
